FAERS Safety Report 18157665 (Version 21)
Quarter: 2021Q1

REPORT INFORMATION
  Report Type: Report from Study
  Country: IL (occurrence: IL)
  Receive Date: 20200817
  Receipt Date: 20210317
  Transmission Date: 20210419
  Serious: Yes (Hospitalization)
  Sender: FDA-Public Use
  Company Number: IL-EISAI MEDICAL RESEARCH-EC-2020-075487

PATIENT
  Age: 64 Year
  Sex: Female
  Weight: 75 kg

DRUGS (16)
  1. LENVATINIB [Suspect]
     Active Substance: LENVATINIB
     Route: 048
     Dates: start: 20201013
  2. PREDNISONE. [Concomitant]
     Active Substance: PREDNISONE
     Dates: start: 20190926
  3. CODEINE [Concomitant]
     Active Substance: CODEINE
     Dates: start: 20191226
  4. OXYGEN. [Concomitant]
     Active Substance: OXYGEN
     Dates: start: 20190805
  5. TOUJEO [Concomitant]
     Active Substance: INSULIN GLARGINE
     Dosage: INTRAVENOUS INJECTION
     Dates: start: 201908
  6. TOUJEO [Concomitant]
     Active Substance: INSULIN GLARGINE
     Dates: start: 201908
  7. FOSAVANCE 70/ 5600 TABLETS [Concomitant]
     Dates: start: 20200124
  8. CARDILOC [Concomitant]
     Active Substance: BISOPROLOL FUMARATE
     Dates: start: 20191124
  9. ELTROXIN [Concomitant]
     Active Substance: LEVOTHYROXINE
     Dates: start: 20200513, end: 20201129
  10. LENVATINIB [Suspect]
     Active Substance: LENVATINIB
     Route: 048
     Dates: start: 20200727, end: 20200803
  11. NEXIUM [Concomitant]
     Active Substance: ESOMEPRAZOLE MAGNESIUM
     Dates: start: 201908
  12. OPTALGIN [Concomitant]
     Active Substance: METAMIZOLE
     Dates: start: 20191001
  13. VIEPAX [Concomitant]
     Active Substance: VENLAFAXINE HYDROCHLORIDE
     Dates: start: 201906, end: 20200809
  14. JANUET [Concomitant]
     Active Substance: METFORMIN HYDROCHLORIDE\SITAGLIPTIN PHOSPHATE
     Dates: start: 200701
  15. LENVATINIB [Suspect]
     Active Substance: LENVATINIB
     Indication: NON-SMALL CELL LUNG CANCER METASTATIC
     Dosage: STARTING DOSE AT 24MG, FLUCTUATED DOSAGE
     Route: 048
     Dates: start: 20191023, end: 20200526
  16. LENVATINIB [Suspect]
     Active Substance: LENVATINIB
     Route: 048
     Dates: start: 20200527, end: 20200608

REACTIONS (2)
  - Femur fracture [Recovered/Resolved]
  - Wound infection [Recovered/Resolved]

NARRATIVE: CASE EVENT DATE: 20200530
